FAERS Safety Report 8954459 (Version 2)
Quarter: 2012Q4

REPORT INFORMATION
  Report Type: 
  Country: AU (occurrence: AU)
  Receive Date: 20121210
  Receipt Date: 20121226
  Transmission Date: 20130627
  Serious: Yes (Other)
  Sender: FDA-Public Use
  Company Number: PHHY2012AU112750

PATIENT
  Sex: Male

DRUGS (2)
  1. ACLASTA [Suspect]
     Indication: OSTEOPOROTIC FRACTURE
     Dosage: 5 mg, UNK
     Route: 042
     Dates: start: 20100526
  2. ACLASTA [Suspect]
     Dosage: 5 mg, UNK
     Route: 042
     Dates: start: 20110902

REACTIONS (3)
  - Quadriplegia [Not Recovered/Not Resolved]
  - Poor venous access [Not Recovered/Not Resolved]
  - Device difficult to use [Not Recovered/Not Resolved]
